FAERS Safety Report 10063265 (Version 2)
Quarter: 2014Q2

REPORT INFORMATION
  Report Type: Spontaneous
  Country: DK (occurrence: DK)
  Receive Date: 20140407
  Receipt Date: 20140422
  Transmission Date: 20141212
  Serious: Yes (Hospitalization)
  Sender: FDA-Public Use
  Company Number: DK-TEVA-472392ISR

PATIENT
  Sex: 0

DRUGS (2)
  1. DESMOPRESSIN [Suspect]
     Indication: NOCTURIA
     Dosage: 120MG
     Route: 065
  2. DESMOPRESSIN [Suspect]
     Indication: NOCTURIA
     Dosage: 240MG (START-UP DOSE OF 120MG WAS DOUBLED)
     Route: 065

REACTIONS (2)
  - Hyponatraemia [Unknown]
  - Mania [Recovered/Resolved]
